FAERS Safety Report 10255169 (Version 1)
Quarter: 2014Q2

REPORT INFORMATION
  Report Type: Spontaneous
  Country: US (occurrence: US)
  Receive Date: 20140624
  Receipt Date: 20140624
  Transmission Date: 20141212
  Serious: Yes (Other)
  Sender: FDA-Public Use
  Company Number: US-BAYER-2014-093347

PATIENT
  Age: 0 Day
  Sex: 0

DRUGS (3)
  1. MIRENA [Suspect]
     Dosage: 20 MCG/24HR, CONT
     Route: 064
     Dates: start: 201303, end: 20130417
  2. CLONIDINE HYDROCHLORIDE [Suspect]
  3. LOTREL [Suspect]

REACTIONS (3)
  - Foetal distress syndrome [None]
  - Premature baby [None]
  - Exposure during pregnancy [None]
